FAERS Safety Report 24869678 (Version 2)
Quarter: 2025Q1

REPORT INFORMATION
  Report Type: Spontaneous
  Country: IT (occurrence: IT)
  Receive Date: 20250121
  Receipt Date: 20250221
  Transmission Date: 20250409
  Serious: Yes (Hospitalization, Other)
  Sender: FRESENIUS KABI
  Company Number: IT-JNTL CONSUMER HEALTH MIDDLE EAST FZ-LLC-20241208565

PATIENT
  Age: 63 Year
  Sex: Male
  Weight: 55 kg

DRUGS (10)
  1. OXALIPLATIN [Suspect]
     Active Substance: OXALIPLATIN
     Indication: Neoplasm malignant
     Route: 042
     Dates: start: 20241205, end: 20241205
  2. LEUCOVORIN [Suspect]
     Active Substance: LEUCOVORIN\LEUCOVORIN CALCIUM
     Indication: Neoplasm malignant
     Route: 042
     Dates: start: 20241205, end: 20241205
  3. LOPERAMIDE HYDROCHLORIDE [Suspect]
     Active Substance: LOPERAMIDE HYDROCHLORIDE
     Indication: Prophylaxis against diarrhoea
     Dosage: 4 MILLIGRAM, THRICE A DAY
     Route: 048
     Dates: start: 20241205
  4. LOPERAMIDE HYDROCHLORIDE [Suspect]
     Active Substance: LOPERAMIDE HYDROCHLORIDE
     Route: 048
     Dates: start: 20241205
  5. TUCATINIB [Suspect]
     Active Substance: TUCATINIB
     Indication: Neoplasm malignant
     Dosage: 300 MG, 2X/DAY (BID), ORAL?FOA-FILM COATED TABLET
     Route: 048
     Dates: start: 20241119, end: 20241210
  6. FLUOROURACIL [Suspect]
     Active Substance: FLUOROURACIL
     Indication: Neoplasm malignant
     Route: 040
     Dates: start: 20241205, end: 20241205
  7. FLUOROURACIL [Suspect]
     Active Substance: FLUOROURACIL
     Route: 042
     Dates: start: 20241205, end: 20241207
  8. ACETAMINOPHEN [Concomitant]
     Active Substance: ACETAMINOPHEN
     Indication: Product used for unknown indication
     Route: 065
     Dates: start: 20241111
  9. PANTOPRAZOLE [Concomitant]
     Active Substance: PANTOPRAZOLE
     Indication: Product used for unknown indication
     Route: 065
     Dates: start: 20240708
  10. ENOXAPARIN SODIUM [Concomitant]
     Active Substance: ENOXAPARIN SODIUM
     Indication: Product used for unknown indication
     Route: 065
     Dates: start: 20241111

REACTIONS (5)
  - Diarrhoea [Recovered/Resolved]
  - Syncope [Recovered/Resolved]
  - Electrocardiogram ST-T segment abnormal [Unknown]
  - General physical health deterioration [Unknown]
  - Drug intolerance [Unknown]

NARRATIVE: CASE EVENT DATE: 20241209
